FAERS Safety Report 6704875-2 (Version None)
Quarter: 2010Q2

REPORT INFORMATION
  Report Type: 
  Country: None (occurrence: None)
  Receive Date: 20100430
  Receipt Date: 20100301
  Transmission Date: 20101027
  Serious: No
  Sender: FDA-Public Use
  Company Number: US-ASTRAZENECA-2010SE00032

PATIENT
  Age: 72 Year
  Sex: Male
  Weight: 72.6 kg

DRUGS (8)
  1. NEXIUM [Suspect]
     Indication: GASTROOESOPHAGEAL REFLUX DISEASE
     Route: 048
     Dates: start: 20040101
  2. CRESTOR [Concomitant]
     Indication: BLOOD CHOLESTEROL INCREASED
     Route: 048
  3. ZETIA [Concomitant]
  4. NIASPAN [Concomitant]
  5. LOVASA [Concomitant]
  6. VIT D [Concomitant]
  7. ASPIRIN [Concomitant]
  8. SYNTHROID [Concomitant]
     Indication: HYPOTHYROIDISM

REACTIONS (1)
  - HYPOTHYROIDISM [None]
